FAERS Safety Report 7987525-7 (Version None)
Quarter: 2011Q4

REPORT INFORMATION
  Report Type: 
  Country: None (occurrence: None)
  Receive Date: 20111216
  Receipt Date: 20111205
  Transmission Date: 20120403
  Serious: Yes (Other)
  Sender: FDA-Public Use
  Company Number: PHEH2008US11032

PATIENT
  Sex: Male

DRUGS (9)
  1. ASPIRIN [Concomitant]
     Dosage: 325 MG, UNK
  2. TRILEPTAL [Suspect]
     Dosage: 1 DF, QHS
     Route: 048
  3. FISH OIL [Concomitant]
  4. TRILEPTAL [Suspect]
     Indication: COMPLEX PARTIAL SEIZURES
     Dosage: 600 MG, BID
     Route: 048
  5. TRILEPTAL [Suspect]
     Dosage: 600 MG, QHS
     Route: 048
  6. L-LYSINE [Concomitant]
     Dosage: 500 MG, UNK
  7. CALCIUM [Concomitant]
     Dosage: 600 MG, UNK
  8. SAW PALMETTO [Concomitant]
  9. MULTI-VITAMINS [Concomitant]

REACTIONS (6)
  - LENTIGO MALIGNA STAGE UNSPECIFIED [None]
  - MOUTH ULCERATION [None]
  - RASH [None]
  - TONGUE ULCERATION [None]
  - GRAND MAL CONVULSION [None]
  - SOMNOLENCE [None]
